FAERS Safety Report 7344743-9 (Version None)
Quarter: 2011Q1

REPORT INFORMATION
  Report Type: 
  Country: None (occurrence: None)
  Receive Date: 20110310
  Receipt Date: 20110301
  Transmission Date: 20110831
  Serious: Yes (Hospitalization)
  Sender: FDA-Public Use
  Company Number: GB-ASTRAZENECA-2010SE56819

PATIENT
  Age: 38 Year
  Sex: Male
  Weight: 114 kg

DRUGS (3)
  1. NEXIUM [Suspect]
     Indication: GASTRIC ULCER
     Route: 048
     Dates: start: 20040501, end: 20100801
  2. LOSARTAN POTASSIUM [Concomitant]
     Indication: BLOOD PRESSURE
  3. NEXIUM [Suspect]
     Indication: DUODENAL ULCER
     Route: 048
     Dates: start: 20040501, end: 20100801

REACTIONS (14)
  - SURGERY [None]
  - NECK PAIN [None]
  - CONSTIPATION [None]
  - PAIN [None]
  - ESSENTIAL HYPERTENSION [None]
  - BACK PAIN [None]
  - FEELING ABNORMAL [None]
  - ANORECTAL DISCOMFORT [None]
  - ANAL FISSURE [None]
  - ERYTHEMA [None]
  - ARTHRALGIA [None]
  - ANAL PRURITUS [None]
  - SOMNOLENCE [None]
  - HAEMORRHOIDS [None]
